FAERS Safety Report 6258913-4 (Version None)
Quarter: 2009Q3

REPORT INFORMATION
  Report Type: 
  Country: None (occurrence: None)
  Receive Date: 20090707
  Receipt Date: 20090629
  Transmission Date: 20100115
  Serious: Yes (Other)
  Sender: FDA-Public Use
  Company Number: DE-ABBOTT-08P-062-0480439-00

PATIENT
  Sex: Female
  Weight: 60 kg

DRUGS (3)
  1. HUMIRA [Suspect]
     Indication: ANKYLOSING SPONDYLITIS
     Route: 058
     Dates: start: 20080229
  2. L-THYROXIN [Concomitant]
     Indication: HYPOTHYROIDISM
     Route: 048
  3. SURGAM [Concomitant]
     Indication: PAIN
     Route: 048

REACTIONS (3)
  - IMPLANT EXPULSION [None]
  - RESORPTION BONE INCREASED [None]
  - RESPIRATORY DISORDER [None]
